FAERS Safety Report 4277720-5 (Version None)
Quarter: 2004Q1

REPORT INFORMATION
  Report Type: 
  Country: None (occurrence: None)
  Receive Date: 20040121
  Receipt Date: 20031023
  Transmission Date: 20041129
  Serious: Yes (Hospitalization)
  Sender: FDA-Public Use
  Company Number: EWC031036759

PATIENT
  Age: 54 Year
  Sex: Female

DRUGS (2)
  1. METHIMAZOLE [Suspect]
     Dosage: 15 MG/DAY
     Dates: start: 20030701, end: 20030930
  2. PROPRANOLOL [Concomitant]

REACTIONS (3)
  - AGRANULOCYTOSIS [None]
  - CELLULITIS [None]
  - LIVER DISORDER [None]
